FAERS Safety Report 8799160 (Version 1)
Quarter: 2012Q4

REPORT INFORMATION
  Report Type: 
  Country: US (occurrence: US)
  Receive Date: 20120920
  Receipt Date: 20120920
  Transmission Date: 20130627
  Serious: No
  Sender: FDA-Public Use
  Company Number: US-ASTRAZENECA-2012SE14607

PATIENT
  Age: 56 Year
  Sex: Female
  Weight: 150.1 kg

DRUGS (9)
  1. LISINOPRIL [Suspect]
     Indication: BLOOD PRESSURE ABNORMAL
     Route: 048
  2. SEROQUEL [Suspect]
     Indication: DEPRESSION
     Route: 048
  3. SEROQUEL [Suspect]
     Indication: DEPRESSION
     Route: 048
  4. ABILIFY [Suspect]
     Indication: DRUG WITHDRAWAL MAINTENANCE THERAPY
     Route: 048
  5. DOXEPIN [Suspect]
     Indication: DEPRESSION
     Route: 048
  6. DOXEPIN [Suspect]
     Indication: ANXIETY
     Route: 048
  7. VIIBRYD [Suspect]
     Indication: DEPRESSION
     Route: 048
  8. HYDROCHLOROTHIAZIDE [Suspect]
     Indication: BLOOD PRESSURE ABNORMAL
     Route: 048
  9. LEVOTHYROXINE [Concomitant]
     Indication: HYPOTHYROIDISM

REACTIONS (8)
  - Fibromyalgia [Unknown]
  - Gait disturbance [Unknown]
  - Nasal congestion [Unknown]
  - Weight increased [Unknown]
  - Increased appetite [Unknown]
  - Myalgia [Unknown]
  - Fatigue [Unknown]
  - Off label use [Unknown]
